FAERS Safety Report 14822969 (Version 3)
Quarter: 2018Q2

REPORT INFORMATION
  Report Type: Report from Study
  Country: US (occurrence: US)
  Receive Date: 20180427
  Receipt Date: 20180618
  Transmission Date: 20180711
  Serious: Yes (Hospitalization)
  Sender: FDA-Public Use
  Company Number: PHHY2018US061952

PATIENT
  Age: 65 Year
  Sex: Female
  Weight: 62.59 kg

DRUGS (2)
  1. LANTUS [Suspect]
     Active Substance: INSULIN GLARGINE
     Indication: TYPE 2 DIABETES MELLITUS
     Dosage: 10 U, BID
     Route: 065
     Dates: end: 20180408
  2. SIGNIFOR [Suspect]
     Active Substance: PASIREOTIDE
     Indication: PITUITARY-DEPENDENT CUSHING^S SYNDROME
     Dosage: 0.3 MG, BID
     Route: 058
     Dates: start: 20161216

REACTIONS (7)
  - Metabolic alkalosis [Recovered/Resolved]
  - Hypoglycaemia [Recovered/Resolved]
  - Syncope [Unknown]
  - Hypokalaemia [Recovered/Resolved]
  - Loss of consciousness [Unknown]
  - Dizziness [Unknown]
  - Mental impairment [Recovered/Resolved]

NARRATIVE: CASE EVENT DATE: 20180402
